FAERS Safety Report 5523871-4 (Version None)
Quarter: 2007Q4

REPORT INFORMATION
  Report Type: 
  Country: None (occurrence: None)
  Receive Date: 20071121
  Receipt Date: 20071116
  Transmission Date: 20080405
  Serious: Yes (Other)
  Sender: FDA-Public Use
  Company Number: US-SHR-US-2007-034229

PATIENT
  Age: 67 Year
  Sex: Male

DRUGS (6)
  1. LEUKINE [Suspect]
     Dates: start: 20070701, end: 20071002
  2. LEUKINE [Suspect]
     Dates: start: 20071025
  3. TERAZOSIN HCL [Concomitant]
     Dosage: 5 MG, 1X/DAY
     Route: 048
  4. FINASTERIDE [Concomitant]
     Dosage: 5 MG, 1X/DAY
     Route: 048
  5. VYTORIN [Concomitant]
     Dosage: 10/40 MG, 1X/DAY
     Route: 048
  6. QUINAPRIL HCL [Concomitant]
     Dosage: 20 MG, 1X/DAY
     Route: 048

REACTIONS (1)
  - BLINDNESS UNILATERAL [None]
